FAERS Safety Report 16126273 (Version 1)
Quarter: 2019Q1

REPORT INFORMATION
  Report Type: Spontaneous
  Country: US (occurrence: US)
  Receive Date: 20190328
  Receipt Date: 20190328
  Transmission Date: 20190418
  Serious: No
  Sender: FDA-Public Use
  Company Number: US-009507513-1902USA011916

PATIENT
  Age: 45 Year
  Sex: Female

DRUGS (7)
  1. KETOCONAZOLE. [Concomitant]
     Active Substance: KETOCONAZOLE
     Indication: PITUITARY-DEPENDENT CUSHING^S SYNDROME
     Dosage: 500 MG BID
     Dates: start: 2017
  2. TEMODAR [Suspect]
     Active Substance: TEMOZOLOMIDE
     Indication: PITUITARY CANCER METASTATIC
     Dosage: 150 MG/MM2 GIVEN OVER 5 CONSECUTIVE DAYS, EVERY 4 WEEKS
     Dates: start: 2017
  3. TEMODAR [Suspect]
     Active Substance: TEMOZOLOMIDE
     Indication: METASTASES TO LIVER
  4. TEMODAR [Suspect]
     Active Substance: TEMOZOLOMIDE
     Indication: METASTASES TO BONE
  5. CABERGOLINE. [Concomitant]
     Active Substance: CABERGOLINE
     Dosage: STARTING DOSE AT 0.5 MG TWICE A WEEK, SLOWLY TITRATE UP HER CABERGOLINE DOSE TO 2 MG TWICE A WEEK
     Dates: start: 2017
  6. CABERGOLINE. [Concomitant]
     Active Substance: CABERGOLINE
     Indication: PITUITARY TUMOUR BENIGN
     Dosage: STARTING DOSE AT 0.5 MG TWICE A WEEK, SLOWLY TITRATE UP HER CABERGOLINE DOSE TO 2 MG TWICE A WEEK
     Dates: start: 201512, end: 2017
  7. PASIREOTIDE. [Concomitant]
     Active Substance: PASIREOTIDE
     Indication: PITUITARY TUMOUR BENIGN
     Dosage: 0.6 MG/ML SUBCUTANEOUSLY TWICE A DAY
     Route: 058
     Dates: start: 201512

REACTIONS (1)
  - Off label use [Unknown]

NARRATIVE: CASE EVENT DATE: 2017
